FAERS Safety Report 5954721-X (Version None)
Quarter: 2008Q4

REPORT INFORMATION
  Report Type: 
  Country: None (occurrence: None)
  Receive Date: 20081112
  Receipt Date: 20081106
  Transmission Date: 20090506
  Serious: Yes (Life-Threatening)
  Sender: FDA-Public Use
  Company Number: 2008SP022713

PATIENT
  Age: 46 Year
  Sex: Male
  Weight: 105.5 kg

DRUGS (7)
  1. PEG-INTRON [Suspect]
     Indication: HEPATITIS C
     Dosage: 100 MCG; QW; SC
     Route: 058
     Dates: start: 20051101, end: 20051201
  2. PEG-INTRON [Suspect]
     Indication: HEPATITIS C
     Dosage: 100 MCG; QW; SC
     Route: 058
     Dates: start: 20080701
  3. REBETOL [Suspect]
     Indication: HEPATITIS C
     Dosage: 1000 MG; QD; PO, 400 MG; QAM; PO, 600 MG; QPM; PO
     Route: 048
     Dates: start: 20051101, end: 20051201
  4. REBETOL [Suspect]
     Indication: HEPATITIS C
     Dosage: 1000 MG; QD; PO, 400 MG; QAM; PO, 600 MG; QPM; PO
     Route: 048
     Dates: start: 20080701
  5. REBETOL [Suspect]
     Indication: HEPATITIS C
     Dosage: 1000 MG; QD; PO, 400 MG; QAM; PO, 600 MG; QPM; PO
     Route: 048
     Dates: start: 20080701
  6. INSULATARD HM [Concomitant]
  7. RISPERDAL [Concomitant]

REACTIONS (5)
  - HAEMATOTOXICITY [None]
  - PANCYTOPENIA [None]
  - PSYCHOTIC DISORDER [None]
  - TREATMENT FAILURE [None]
  - VARICES OESOPHAGEAL [None]
